FAERS Safety Report 15008562 (Version 1)
Quarter: 2018Q2

REPORT INFORMATION
  Report Type: Spontaneous
  Country: FR (occurrence: FR)
  Receive Date: 20180613
  Receipt Date: 20180613
  Transmission Date: 20180711
  Serious: Yes (Death, Hospitalization)
  Sender: FDA-Public Use
  Company Number: FR-BEH-2018091489

PATIENT
  Age: 75 Year
  Sex: Female

DRUGS (1)
  1. RESPREEZA [Suspect]
     Active Substance: .ALPHA.1-PROTEINASE INHIBITOR HUMAN
     Indication: ALPHA-1 ANTI-TRYPSIN DEFICIENCY
     Dosage: UNK, Q15D
     Route: 065

REACTIONS (3)
  - Chronic respiratory failure [Fatal]
  - Septic shock [Fatal]
  - Pneumonia klebsiella [Fatal]
